FAERS Safety Report 9114935 (Version 1)
Quarter: 2013Q1

REPORT INFORMATION
  Report Type: Report from Study
  Country: US (occurrence: US)
  Receive Date: 20130208
  Receipt Date: 20130208
  Transmission Date: 20140127
  Serious: No
  Sender: FDA-Public Use
  Company Number: US-VERTEX PHARMACEUTICALS INC.-2013-001715

PATIENT
  Age: 46 Year
  Sex: Female

DRUGS (5)
  1. VX-950 (TELAPREVIR) [Suspect]
     Indication: HEPATITIS C
     Dosage: 750 MG, TID
     Route: 048
     Dates: start: 20130201
  2. RIBAPAK [Suspect]
     Indication: HEPATITIS C
     Dosage: 600 MG AM, 400 MG PM
     Route: 048
     Dates: start: 20130201
  3. PEGASYS [Suspect]
     Indication: HEPATITIS C
     Dosage: 180 ?G, QW
     Route: 058
     Dates: start: 20130201
  4. AMBIEN [Concomitant]
     Dosage: 10 MG, PRN
     Route: 048
  5. IBUPROFEN [Concomitant]
     Dosage: 200 MG, PRN
     Route: 048

REACTIONS (4)
  - Cough [Unknown]
  - Nasal congestion [Unknown]
  - Feeling abnormal [Unknown]
  - Fatigue [Unknown]
